FAERS Safety Report 9893144 (Version 3)
Quarter: 2014Q2

REPORT INFORMATION
  Report Type: Spontaneous
  Country: JP (occurrence: JP)
  Receive Date: 20140213
  Receipt Date: 20140409
  Transmission Date: 20141212
  Serious: Yes (Hospitalization)
  Sender: FDA-Public Use
  Company Number: JP-009507513-1402JPN003907

PATIENT
  Age: 68 Year
  Sex: Male
  Weight: 84 kg

DRUGS (11)
  1. JANUVIA TABLETS 50MG [Suspect]
     Indication: DIABETES MELLITUS
     Dosage: 50 MG, QD
     Route: 048
     Dates: start: 20121203, end: 20130412
  2. AMARYL [Concomitant]
     Dosage: 0.5 MG, QD
     Route: 048
  3. IRBETAN [Concomitant]
     Dosage: 50 MG, QD
     Route: 048
  4. ADALAT CR [Concomitant]
     Dosage: 40 MG, QD
     Route: 048
  5. FUROSEMIDE [Concomitant]
     Dosage: 40 MG, QD
     Route: 048
  6. SPIRONOLACTONE [Concomitant]
     Dosage: 25 MG, QD
     Route: 048
  7. BAYASPIRIN [Concomitant]
     Dosage: 100 MG, QD
     Route: 048
  8. FAMOTIDINE [Concomitant]
     Dosage: 20 MG, QD
     Route: 048
  9. ZYLORIC [Concomitant]
     Dosage: 50 MG, QD
     Route: 048
  10. CRESTOR [Concomitant]
     Dosage: 5 MG, QD
     Route: 048
  11. LAXOBERON [Concomitant]
     Dosage: 2.5 MG, QD
     Route: 048

REACTIONS (2)
  - Anti-insulin receptor antibody positive [Recovering/Resolving]
  - Nasopharyngitis [Unknown]
